FAERS Safety Report 17913113 (Version 1)
Quarter: 2020Q2

REPORT INFORMATION
  Report Type: Report from Study
  Country: US (occurrence: US)
  Receive Date: 20200618
  Receipt Date: 20200618
  Transmission Date: 20200714
  Serious: Yes (Hospitalization, Other)
  Sender: FDA-Public Use
  Company Number: US-GILEAD-2020-0458390

PATIENT
  Age: 63 Year
  Sex: Female

DRUGS (12)
  1. AZTREONAM LYSINE [Suspect]
     Active Substance: AZTREONAM LYSINE
     Indication: CYSTIC FIBROSIS
     Dosage: 75 MG VIAL VIA ALTERA NEBULIZER THREE TIMES A DAY FOR 28 DAYS ON AND 28 D
     Route: 055
     Dates: start: 201707
  2. PROGESTERONE. [Concomitant]
     Active Substance: PROGESTERONE
  3. CALCIUM MAGNESIUM [CALCIUM;MAGNESIUM] [Concomitant]
  4. LEVOTHYROXINE AND LIOTHYRONINE [LEVOTHYROXINE;LIOTHYRONINE] [Concomitant]
  5. AZTREONAM LYSINE [Suspect]
     Active Substance: AZTREONAM LYSINE
     Indication: BRONCHIECTASIS
  6. AZITHROMYCIN ANHYDROUS. [Concomitant]
     Active Substance: AZITHROMYCIN ANHYDROUS
  7. TESTOSTERONE. [Concomitant]
     Active Substance: TESTOSTERONE
  8. ASPIRIN [ACETYLSALICYLIC ACID] [Concomitant]
     Active Substance: ASPIRIN
  9. AZATHIOPRINE. [Concomitant]
     Active Substance: AZATHIOPRINE
  10. IPRATROPIUM/ALBUTEROL [Concomitant]
     Active Substance: ALBUTEROL\IPRATROPIUM
  11. VITAMIN D3 [Concomitant]
     Active Substance: CHOLECALCIFEROL
  12. RITUXAN [Concomitant]
     Active Substance: RITUXIMAB

REACTIONS (1)
  - Coccidioidomycosis [Unknown]
